FAERS Safety Report 25201600 (Version 1)
Quarter: 2025Q2

REPORT INFORMATION
  Report Type: Spontaneous
  Country: FR (occurrence: FR)
  Receive Date: 20250416
  Receipt Date: 20250416
  Transmission Date: 20250716
  Serious: Yes (Hospitalization)
  Sender: TEVA
  Company Number: None

PATIENT
  Age: 88 Year
  Sex: Female
  Weight: 63.8 kg

DRUGS (4)
  1. AMOXICILLIN [Suspect]
     Active Substance: AMOXICILLIN
     Indication: Bacteraemia
     Dosage: 2 G EVERY 6 HOURS IV THEN 1 G EVERY 6 HOURS
     Route: 042
     Dates: start: 20250311, end: 20250311
  2. AMOXICILLIN [Suspect]
     Active Substance: AMOXICILLIN
     Indication: Bacteraemia
     Dosage: 1 G EVERY 6 HOURS (ADAPTATION TO RENAL FUNCTION)
     Route: 042
     Dates: start: 20250312, end: 20250320
  3. METOCLOPRAMIDE [Concomitant]
     Active Substance: METOCLOPRAMIDE
     Indication: Product used for unknown indication
     Route: 065
  4. CALCIDOSE [Concomitant]
     Indication: Product used for unknown indication
     Route: 065

REACTIONS (1)
  - Erythema [Not Recovered/Not Resolved]

NARRATIVE: CASE EVENT DATE: 20250320
